FAERS Safety Report 13321748 (Version 1)
Quarter: 2017Q1

REPORT INFORMATION
  Report Type: Spontaneous
  Country: US (occurrence: US)
  Receive Date: 20170310
  Receipt Date: 20170310
  Transmission Date: 20170428
  Serious: No
  Sender: FDA-Public Use
  Company Number: None

PATIENT
  Age: 69 Year
  Sex: Female

DRUGS (1)
  1. EXEMESTANE TAB 25MG [Suspect]
     Active Substance: EXEMESTANE
     Indication: BREAST CANCER FEMALE
     Route: 048
     Dates: start: 20161221, end: 20170301

REACTIONS (2)
  - Hepatic enzyme increased [None]
  - Blood creatine increased [None]

NARRATIVE: CASE EVENT DATE: 20170310
